FAERS Safety Report 9043923 (Version 1)
Quarter: 2013Q1

REPORT INFORMATION
  Report Type: Report from Study
  Country: US (occurrence: US)
  Receive Date: 20130130
  Receipt Date: 20130130
  Transmission Date: 20140127
  Serious: No
  Sender: FDA-Public Use
  Company Number: US-ABBOTT-12P-163-0947087-00

PATIENT
  Age: 63 Year
  Sex: Female

DRUGS (7)
  1. HUMIRA 40 MG/0.8 ML PEN [Suspect]
     Indication: PRODUCT USED FOR UNKNOWN INDICATION
     Dates: start: 201112
  2. GABAPENTIN [Concomitant]
     Indication: DIABETES MELLITUS
  3. METHOCARBAMOL [Concomitant]
     Indication: PRODUCT USED FOR UNKNOWN INDICATION
  4. METHOTREXATE [Concomitant]
     Indication: PRODUCT USED FOR UNKNOWN INDICATION
     Dosage: 4-2.5MG TABLETS WEEKLY
  5. MELOXICAM [Concomitant]
     Indication: PAIN
     Dosage: 15 MG EVERY DAY
  6. LEVEMIR [Concomitant]
     Indication: DIABETES MELLITUS
  7. LOVASTATIN [Concomitant]
     Indication: BLOOD CHOLESTEROL
     Dosage: 40MG EVERY DAY

REACTIONS (2)
  - Injection site erythema [Not Recovered/Not Resolved]
  - Injection site pruritus [Not Recovered/Not Resolved]
